FAERS Safety Report 7728197-6 (Version None)
Quarter: 2011Q3

REPORT INFORMATION
  Report Type: 
  Country: None (occurrence: None)
  Receive Date: 20110905
  Receipt Date: 20110825
  Transmission Date: 20111222
  Serious: Yes (Other)
  Sender: FDA-Public Use
  Company Number: PHEH2011US02539

PATIENT
  Sex: Male

DRUGS (1)
  1. GILENYA [Suspect]
     Dosage: UNK UKN, UNK
     Dates: start: 20110719

REACTIONS (4)
  - FACIAL PARESIS [None]
  - LYMPHOCYTE COUNT DECREASED [None]
  - CRANIAL NERVE INFECTION [None]
  - CRANIAL NERVE DISORDER [None]
